FAERS Safety Report 8432911-4 (Version None)
Quarter: 2012Q2

REPORT INFORMATION
  Report Type: 
  Country: None (occurrence: None)
  Receive Date: 20120323
  Receipt Date: 20110802
  Transmission Date: 20120825
  Serious: Yes (Other)
  Sender: FDA-Public Use
  Company Number: 163-21880-11072093

PATIENT
  Age: 86 Year
  Sex: Female

DRUGS (11)
  1. LIFE TRANSFER FACTOR PLUS (ALL OTHER THERAPEUTIC PRODUCTS) [Concomitant]
  2. MIRALAX [Concomitant]
  3. ALLOPURINOL [Concomitant]
  4. SHARK CARTILAGE (SHARK CARTILAGE) (CAPSULES) [Concomitant]
  5. CALCIUM WITH VITAMIN D (CALCIUM WITH VITAMIN D) [Concomitant]
  6. CLONAZEPAM [Concomitant]
  7. METOPROLOL SUCCINATE [Concomitant]
  8. LEVOTHYROXINE SODIUM [Concomitant]
  9. ASPIRIN [Concomitant]
  10. PRAMIPEXOLE DIHYDROCHLORIDE [Concomitant]
  11. REVLIMID [Suspect]
     Indication: LYMPHOMA
     Dosage: 5 MG, DAILY FOR 21 DAYS, PO
     Route: 048
     Dates: start: 20110416, end: 20110506

REACTIONS (1)
  - HAEMORRHOIDAL HAEMORRHAGE [None]
